FAERS Safety Report 5252613-5 (Version None)
Quarter: 2007Q1

REPORT INFORMATION
  Report Type: 
  Country: None (occurrence: None)
  Receive Date: 20070301
  Receipt Date: 20070220
  Transmission Date: 20070707
  Serious: Yes (Other)
  Sender: FDA-Public Use
  Company Number: US-JNJFOC-20070205105

PATIENT
  Sex: Male

DRUGS (2)
  1. DURAGESIC [Suspect]
  2. DURAGESIC [Suspect]
     Indication: DRUG EXPOSURE DURING PREGNANCY

REACTIONS (6)
  - BLINDNESS [None]
  - CEREBRAL PALSY [None]
  - CEREBROVASCULAR ACCIDENT [None]
  - CONVULSION [None]
  - PREMATURE BABY [None]
  - SMALL FOR DATES BABY [None]
